FAERS Safety Report 6336533-0 (Version None)
Quarter: 2009Q3

REPORT INFORMATION
  Report Type: 
  Country: None (occurrence: None)
  Receive Date: 20090901
  Receipt Date: 20090824
  Transmission Date: 20100115
  Serious: Yes (Other)
  Sender: FDA-Public Use
  Company Number: JP-ROCHE-652760

PATIENT
  Age: 46 Year
  Sex: Female

DRUGS (8)
  1. FLUMAZENIL [Suspect]
     Indication: ELECTROCONVULSIVE THERAPY
     Route: 042
  2. FLUMAZENIL [Suspect]
     Route: 042
  3. DIAZEPAM [Suspect]
     Indication: ELECTROCONVULSIVE THERAPY
     Route: 030
  4. ATROPINE [Suspect]
     Indication: ELECTROCONVULSIVE THERAPY
     Route: 065
  5. THIOPENTAL SODIUM [Suspect]
     Indication: ELECTROCONVULSIVE THERAPY
     Route: 065
  6. SUCCINYLCHOLINE [Suspect]
     Indication: ELECTROCONVULSIVE THERAPY
     Route: 065
  7. NICARDIPINE HYDROCHLORIDE [Suspect]
     Indication: ELECTROCONVULSIVE THERAPY
     Route: 065
  8. NITRAZEPAM [Suspect]
     Indication: ELECTROCONVULSIVE THERAPY
     Route: 065

REACTIONS (2)
  - PANIC ATTACK [None]
  - PSYCHOTIC DISORDER [None]
